FAERS Safety Report 7694475-2 (Version None)
Quarter: 2011Q3

REPORT INFORMATION
  Report Type: 
  Country: None (occurrence: None)
  Receive Date: 20110819
  Receipt Date: 20110811
  Transmission Date: 20111222
  Serious: Yes (Other)
  Sender: FDA-Public Use
  Company Number: PHHY2011CA43575

PATIENT
  Sex: Female
  Weight: 89 kg

DRUGS (13)
  1. ASPIRIN [Concomitant]
     Dosage: 81 MG, QD
  2. ATENOLOL [Concomitant]
     Indication: CARDIAC DISORDER
     Dosage: 50 MG, QD
     Route: 048
  3. LYRICA [Concomitant]
     Dosage: 275 MG, QD
  4. TRAZODONE HCL [Concomitant]
     Dosage: 50 MG, PRN
     Route: 048
  5. ASPIRIN [Concomitant]
     Indication: CARDIAC DISORDER
     Dosage: 81 MG, UNK
     Route: 048
  6. VITAMIN D [Concomitant]
     Dosage: 2000 IU, PER DAY
  7. EXTAVIA [Suspect]
     Indication: RELAPSING-REMITTING MULTIPLE SCLEROSIS
     Dosage: 8 MIU, QOD
     Route: 058
     Dates: start: 20110502, end: 20110715
  8. EXTAVIA [Suspect]
     Dosage: 4 MIU, EVERY OTHER DAY
     Route: 058
     Dates: start: 20110502
  9. EXTAVIA [Suspect]
     Dosage: 0.062 MG, UNK
     Route: 058
  10. EXTAVIA [Suspect]
     Dosage: 0.25 MG, FOR 2 DAYS
     Route: 058
  11. RABEPRAZOLE SODIUM [Concomitant]
     Indication: GASTROOESOPHAGEAL REFLUX DISEASE
     Dosage: 20 MG, UNK
  12. MULTI-VITAMINS [Concomitant]
     Dosage: UNK UKN, UNK
  13. RABEPRAZOLE SODIUM [Concomitant]
     Dosage: UNK UKN, UNK

REACTIONS (8)
  - BURNING SENSATION [None]
  - SKIN EXFOLIATION [None]
  - INJECTION SITE ERYTHEMA [None]
  - INJECTION SITE URTICARIA [None]
  - DERMATITIS EXFOLIATIVE [None]
  - DRUG HYPERSENSITIVITY [None]
  - HEADACHE [None]
  - CHILLS [None]
